FAERS Safety Report 6145824-8 (Version None)
Quarter: 2009Q2

REPORT INFORMATION
  Report Type: 
  Country: None (occurrence: None)
  Receive Date: 20090407
  Receipt Date: 20090403
  Transmission Date: 20091009
  Serious: Yes (Hospitalization)
  Sender: FDA-Public Use
  Company Number: DE-WYE-G03159509

PATIENT
  Sex: Male

DRUGS (3)
  1. TREVILOR RETARD [Suspect]
     Dosage: OVERDOSE AMOUNT UNKNOWN
     Route: 048
     Dates: start: 20090219, end: 20090219
  2. ETHANOL [Suspect]
     Dosage: UNKNOWN AMOUNT OF WODKA (OVERDOSE AMOUNT UNKNOWN)
     Route: 048
     Dates: start: 20090219, end: 20090219
  3. AGGRENOX [Suspect]
     Dosage: 25 CAPSULES (OVERDOSE AMOUNT 5000 MG DIPYRIDAMOLE/625 MG ACETYLSALICYLIC ACID)
     Route: 048
     Dates: start: 20090219, end: 20090219

REACTIONS (9)
  - C-REACTIVE PROTEIN INCREASED [None]
  - CONSTIPATION [None]
  - DISORIENTATION [None]
  - HYPOTENSION [None]
  - INTENTIONAL OVERDOSE [None]
  - LOSS OF CONSCIOUSNESS [None]
  - OXYGEN SATURATION DECREASED [None]
  - PNEUMONIA ASPIRATION [None]
  - SUICIDE ATTEMPT [None]
